FAERS Safety Report 13135677 (Version 1)
Quarter: 2017Q1

REPORT INFORMATION
  Report Type: Spontaneous
  Country: US (occurrence: US)
  Receive Date: 20170120
  Receipt Date: 20170120
  Transmission Date: 20170428
  Serious: Yes (Life-Threatening, Other)
  Sender: FDA-Public Use
  Company Number: US-PFIZER INC-2017020037

PATIENT
  Age: 51 Year
  Sex: Female
  Weight: 92 kg

DRUGS (4)
  1. DEXTROSE 5% [Concomitant]
     Active Substance: DEXTROSE
     Indication: VEHICLE SOLUTION USE
     Dosage: 85 ML, UNK
     Dates: start: 20161111
  2. TAXOL [Concomitant]
     Active Substance: PACLITAXEL
     Dosage: 138MG
  3. DEXTROSE 5% [Concomitant]
     Active Substance: DEXTROSE
     Dosage: 250 ML, UNK
  4. CARBOPLATIN. [Suspect]
     Active Substance: CARBOPLATIN
     Indication: NON-SMALL CELL LUNG CANCER
     Dosage: 15MG
     Dates: start: 20161111

REACTIONS (7)
  - Dyspnoea [Recovered/Resolved]
  - Presyncope [Recovered/Resolved]
  - Cardiac arrest [Recovered/Resolved]
  - Ear pruritus [Recovered/Resolved]
  - Cyanosis [Recovered/Resolved]
  - Nausea [Recovered/Resolved]
  - Pallor [Recovered/Resolved]

NARRATIVE: CASE EVENT DATE: 20161111
